FAERS Safety Report 17262528 (Version 4)
Quarter: 2020Q3

REPORT INFORMATION
  Report Type: Spontaneous
  Country: US (occurrence: US)
  Receive Date: 20200113
  Receipt Date: 20200810
  Transmission Date: 20201102
  Serious: No
  Sender: FDA-Public Use
  Company Number: US-PFIZER INC-2019412345

PATIENT
  Age: 59 Year
  Sex: Male
  Weight: 99.79 kg

DRUGS (10)
  1. VFEND [Suspect]
     Active Substance: VORICONAZOLE
     Dosage: 450 MG, DAILY (200 MG TABLET IN THE MORNING AND 200 MG TABLET PLUS 50 MG TABLET IN THE EVENING)
     Route: 048
     Dates: start: 2019
  2. VFEND [Suspect]
     Active Substance: VORICONAZOLE
     Dosage: 50 MG, DAILY
     Route: 048
  3. VFEND [Suspect]
     Active Substance: VORICONAZOLE
     Indication: COCCIDIOIDOMYCOSIS
     Dosage: 200 MG, UNK
  4. VFEND [Suspect]
     Active Substance: VORICONAZOLE
     Indication: PYREXIA
     Dosage: 450 MG, DAILY (200MG IN THE MORNING, 250MG IN THE EVENING)
     Route: 048
     Dates: start: 20181212
  5. VFEND [Suspect]
     Active Substance: VORICONAZOLE
     Dosage: 400 MG, DAILY (2 TABLETS DAILY)
     Dates: start: 2019
  6. LISINOPRIL. [Concomitant]
     Active Substance: LISINOPRIL
     Indication: BLOOD PRESSURE MEASUREMENT
     Dosage: UNK, 1X/DAY
  7. VFEND [Suspect]
     Active Substance: VORICONAZOLE
     Dosage: 200 MG, 2X/DAY
     Route: 048
  8. METFORMIN [Concomitant]
     Active Substance: METFORMIN HYDROCHLORIDE
     Indication: DIABETES MELLITUS
     Dosage: 1000 MG, 2X/DAY (TWO IN THE MORNING, TWO IN THE NIGHT)
  9. VFEND [Suspect]
     Active Substance: VORICONAZOLE
     Dosage: UNK
     Route: 048
  10. INSULIN [Concomitant]
     Active Substance: INSULIN NOS
     Indication: DIABETES MELLITUS
     Dosage: UNK

REACTIONS (4)
  - Product prescribing error [Unknown]
  - Drug ineffective [Unknown]
  - Product dispensing error [Unknown]
  - Headache [Unknown]

NARRATIVE: CASE EVENT DATE: 20200102
